FAERS Safety Report 4582739-0 (Version None)
Quarter: 2005Q1

REPORT INFORMATION
  Report Type: 
  Country: None (occurrence: None)
  Receive Date: 20050127
  Receipt Date: 20041209
  Transmission Date: 20050727
  Serious: Yes (Hospitalization)
  Sender: FDA-Public Use
  Company Number: 04-12-1710

PATIENT
  Age: 67 Year
  Sex: Male

DRUGS (3)
  1. FLUCONAZOLE INJECTABLE SOLUTION [Suspect]
     Indication: PNEUMONIA
     Dosage: INTRAVENOUS
     Route: 042
  2. PANIPENEM INJECTABLE SOLUTION [Concomitant]
  3. BETAMIPROM INJECTABLE SOLUTION [Concomitant]

REACTIONS (1)
  - PANCREATITIS [None]
